FAERS Safety Report 6114817-9 (Version None)
Quarter: 2009Q1

REPORT INFORMATION
  Report Type: 
  Country: None (occurrence: None)
  Receive Date: 20090311
  Receipt Date: 20080222
  Transmission Date: 20090719
  Serious: Yes (Hospitalization)
  Sender: FDA-Public Use
  Company Number: US200802002538

PATIENT
  Age: 46 Year
  Sex: Female
  Weight: 53.5 kg

DRUGS (5)
  1. GEMZAR [Suspect]
     Indication: NON-SMALL CELL LUNG CANCER
     Dosage: 1600 MG, X3 DOSES, 30 MIN, INFUSIONS, INTRAVENOUS
     Route: 042
     Dates: start: 20080102, end: 20080123
  2. XANAX [Concomitant]
  3. MS CONTIN [Concomitant]
  4. MARINOL [Concomitant]
  5. CIPRO [Concomitant]

REACTIONS (1)
  - RENAL FAILURE [None]
